FAERS Safety Report 4547312-9 (Version None)
Quarter: 2005Q1

REPORT INFORMATION
  Report Type: 
  Country: None (occurrence: None)
  Receive Date: 20050105
  Receipt Date: 20041223
  Transmission Date: 20050727
  Serious: Yes (Other)
  Sender: FDA-Public Use
  Company Number: 2004119077

PATIENT
  Age: 47 Year
  Sex: Female
  Weight: 109.7705 kg

DRUGS (10)
  1. BEXTRA [Suspect]
     Indication: OSTEOARTHRITIS
     Dosage: 1 IN 1 D, ORAL
     Route: 048
     Dates: start: 20030401, end: 20040401
  2. CELEBREX [Suspect]
     Indication: OSTEOARTHRITIS
     Dosage: 200 MG (200 MG, 1 IN 1 D), ORAL
     Route: 048
     Dates: start: 20040401
  3. VALPROATE SODIUM [Concomitant]
  4. ANOVLAR (ETHINYLESTRADIOL, NORETHISTERONE ACETATE) [Concomitant]
  5. ATORVASTATIN (ATORVASTATIN) [Concomitant]
  6. LISINOPRIL [Concomitant]
  7. FEXOFENADINE HYDROCHLORIDE [Concomitant]
  8. PIOGLITAZONE HCL [Concomitant]
  9. ETRAFON-D (AMITRIPTYLINE HYDROCHLORIDE, PERPHENAZINE) [Concomitant]
  10. GLYCERYL TRINITRATE (GLYCERYL TRINTRATE) [Concomitant]

REACTIONS (15)
  - ABDOMINAL DISTENSION [None]
  - ASTHENIA [None]
  - BLOOD PRESSURE INCREASED [None]
  - CEREBROVASCULAR ACCIDENT [None]
  - DIZZINESS [None]
  - EPISTAXIS [None]
  - HAEMORRHAGE [None]
  - HEADACHE [None]
  - HEART RATE IRREGULAR [None]
  - MYOCARDIAL INFARCTION [None]
  - NAUSEA [None]
  - OEDEMA [None]
  - PAIN [None]
  - TREATMENT NONCOMPLIANCE [None]
  - WEIGHT INCREASED [None]
